FAERS Safety Report 23484262 (Version 1)
Quarter: 2024Q1

REPORT INFORMATION
  Report Type: Spontaneous
  Country: US (occurrence: US)
  Receive Date: 20240206
  Receipt Date: 20240206
  Transmission Date: 20240410
  Serious: No
  Sender: FDA-Public Use
  Company Number: US-ABBVIE-5617017

PATIENT
  Sex: Female

DRUGS (2)
  1. LATISSE [Suspect]
     Active Substance: BIMATOPROST
     Indication: Product used for unknown indication
     Dosage: FORM STRENGTH: 0.3MG/ML SOLUTION
     Route: 047
  2. LATISSE [Suspect]
     Active Substance: BIMATOPROST
     Dosage: FORM STRENGTH: 0.3MG/ML SOLUTION
     Route: 047
     Dates: start: 202312

REACTIONS (1)
  - Drug ineffective [Unknown]
